FAERS Safety Report 23600727 (Version 2)
Quarter: 2024Q4

REPORT INFORMATION
  Report Type: Spontaneous
  Country: BR (occurrence: BR)
  Receive Date: 20240306
  Receipt Date: 20241107
  Transmission Date: 20250115
  Serious: Yes (Other)
  Sender: BAYER HEALTHCARE PHARMACEUTICALS INC.
  Company Number: BR-BAYER-2024A033697

PATIENT
  Age: 35 Year
  Sex: Female
  Weight: 53 kg

DRUGS (1)
  1. MIRENA [Suspect]
     Active Substance: LEVONORGESTREL
     Indication: Contraception
     Dosage: 20?G/DAY
     Route: 015
     Dates: start: 20230108, end: 20240207

REACTIONS (3)
  - Uterine perforation [Recovered/Resolved]
  - Pregnancy with contraceptive device [None]
  - Foetal growth restriction [None]

NARRATIVE: CASE EVENT DATE: 20231001
